FAERS Safety Report 7890916-6 (Version None)
Quarter: 2011Q4

REPORT INFORMATION
  Report Type: 
  Country: None (occurrence: None)
  Receive Date: 20111103
  Receipt Date: 20110726
  Transmission Date: 20120403
  Serious: No
  Sender: FDA-Public Use
  Company Number: US-AMGEN-USASP2011038058

PATIENT
  Age: 45 Year
  Sex: Male
  Weight: 65.76 kg

DRUGS (5)
  1. ENBREL [Suspect]
     Indication: PRODUCT USED FOR UNKNOWN INDICATION
     Dosage: 50 MG, QWK
  2. METFORMIN HCL [Concomitant]
     Dosage: 500 MG, UNK
  3. LISINOPRIL [Concomitant]
     Dosage: 2.5 MG, UNK
  4. SULFASALAZINE [Concomitant]
     Dosage: 500 MG, UNK
  5. SIMVASTATIN [Concomitant]
     Dosage: 10 MG, UNK

REACTIONS (1)
  - INJECTION SITE SWELLING [None]
